FAERS Safety Report 9534126 (Version 1)
Quarter: 2013Q3

REPORT INFORMATION
  Report Type: Report from Study
  Country: CO (occurrence: CO)
  Receive Date: 20130918
  Receipt Date: 20130918
  Transmission Date: 20140515
  Serious: Yes (Hospitalization)
  Sender: FDA-Public Use
  Company Number: CO-ABBVIE-13P-036-1148147-00

PATIENT
  Age: 27 Year
  Sex: Male
  Weight: 61 kg

DRUGS (2)
  1. HUMIRA [Suspect]
     Indication: CROHN^S DISEASE
     Route: 058
     Dates: start: 20121005
  2. HUMIRA [Suspect]
     Route: 058
     Dates: start: 20130906

REACTIONS (4)
  - Colitis [Recovering/Resolving]
  - Abdominal pain [Recovering/Resolving]
  - Haematochezia [Recovering/Resolving]
  - Haematochezia [Recovering/Resolving]
